FAERS Safety Report 5764975-0 (Version None)
Quarter: 2008Q2

REPORT INFORMATION
  Report Type: 
  Country: None (occurrence: None)
  Receive Date: 20080611
  Receipt Date: 20080605
  Transmission Date: 20081010
  Serious: Yes (Other)
  Sender: FDA-Public Use
  Company Number: D0057556A

PATIENT
  Age: 20 Year
  Sex: Female
  Weight: 80 kg

DRUGS (2)
  1. LAMICTAL [Suspect]
     Indication: EPILEPSY
     Route: 048
  2. KEPPRA [Suspect]
     Indication: EPILEPSY
     Route: 048
     Dates: start: 20070901, end: 20080301

REACTIONS (2)
  - AGGRESSION [None]
  - NERVOUSNESS [None]
